FAERS Safety Report 12628242 (Version 1)
Quarter: 2016Q3

REPORT INFORMATION
  Report Type: Spontaneous
  Country: US (occurrence: US)
  Receive Date: 20160808
  Receipt Date: 20160808
  Transmission Date: 20161109
  Serious: No
  Sender: FDA-Public Use
  Company Number: US-BEH-2016072031

PATIENT
  Sex: Male
  Weight: 74.83 kg

DRUGS (17)
  1. DIPHENHYDRAMINE. [Concomitant]
     Active Substance: DIPHENHYDRAMINE
  2. IPRATROPIUM BROMIDE. [Concomitant]
     Active Substance: IPRATROPIUM BROMIDE
  3. VITAMIN D                          /00107901/ [Concomitant]
     Active Substance: ERGOCALCIFEROL
  4. XOPENEX [Concomitant]
     Active Substance: LEVALBUTEROL HYDROCHLORIDE
  5. PRILOSEC [Concomitant]
     Active Substance: OMEPRAZOLE MAGNESIUM
  6. OXYCODONE [Concomitant]
     Active Substance: OXYCODONE
  7. ACETAMINOPHEN. [Concomitant]
     Active Substance: ACETAMINOPHEN
  8. EPIPEN [Concomitant]
     Active Substance: EPINEPHRINE
  9. MORPHINE [Concomitant]
     Active Substance: MORPHINE
  10. CALCIUM [Concomitant]
     Active Substance: CALCIUM
  11. LIDOCAINE. [Concomitant]
     Active Substance: LIDOCAINE
  12. NASONEX [Concomitant]
     Active Substance: MOMETASONE FUROATE
  13. SYMBICORT [Concomitant]
     Active Substance: BUDESONIDE\FORMOTEROL FUMARATE DIHYDRATE
  14. CYCLOBENZAPRINE [Concomitant]
     Active Substance: CYCLOBENZAPRINE
  15. IBUPROFEN. [Concomitant]
     Active Substance: IBUPROFEN
  16. ASPIRIN. [Concomitant]
     Active Substance: ASPIRIN
  17. HIZENTRA [Suspect]
     Active Substance: HUMAN IMMUNOGLOBULIN G
     Indication: SELECTIVE IGG SUBCLASS DEFICIENCY
     Dosage: 100 MG, QW
     Route: 058
     Dates: start: 20140814

REACTIONS (2)
  - Upper respiratory tract infection [Unknown]
  - Respiratory disorder [Unknown]
